FAERS Safety Report 6457587-7 (Version None)
Quarter: 2009Q4

REPORT INFORMATION
  Report Type: 
  Country: None (occurrence: None)
  Receive Date: 20091125
  Receipt Date: 20091120
  Transmission Date: 20100525
  Serious: Yes (Life-Threatening, Hospitalization, Other)
  Sender: FDA-Public Use
  Company Number: PHHY2009CA51312

PATIENT
  Sex: Male

DRUGS (5)
  1. DIOVAN [Suspect]
     Indication: HYPERTENSION
     Dosage: 1 TABLET (160 MG) DAILY
     Route: 048
     Dates: start: 20090630
  2. LIPITOR [Concomitant]
     Dosage: 40 MG, QD
  3. CARBAMAZEPINE [Concomitant]
     Dosage: 50
  4. ASPIRIN [Concomitant]
     Dosage: 325 MG, QD
  5. METOPROLOL [Concomitant]
     Dosage: 100 (UNKNOWN UNITS) TWICE A DAY

REACTIONS (5)
  - BLOOD PRESSURE SYSTOLIC INCREASED [None]
  - GRAND MAL CONVULSION [None]
  - MYOCARDIAL INFARCTION [None]
  - PNEUMONIA [None]
  - TREATMENT NONCOMPLIANCE [None]
